FAERS Safety Report 7311027-4 (Version None)
Quarter: 2011Q1

REPORT INFORMATION
  Report Type: 
  Country: None (occurrence: None)
  Receive Date: 20110224
  Receipt Date: 20110214
  Transmission Date: 20110831
  Serious: Yes (Hospitalization, Other)
  Sender: FDA-Public Use
  Company Number: US-ROCHE-734037

PATIENT
  Sex: Female
  Weight: 59 kg

DRUGS (1)
  1. ACCUTANE [Suspect]
     Route: 048
     Dates: start: 20030226, end: 20040628

REACTIONS (7)
  - DRY SKIN [None]
  - CHEILITIS [None]
  - GASTROINTESTINAL INJURY [None]
  - CROHN'S DISEASE [None]
  - COLONIC FISTULA [None]
  - INFLAMMATORY BOWEL DISEASE [None]
  - INTESTINAL OBSTRUCTION [None]
